FAERS Safety Report 19293027 (Version 1)
Quarter: 2021Q2

REPORT INFORMATION
  Report Type: Spontaneous
  Country: US (occurrence: US)
  Receive Date: 20210522
  Receipt Date: 20210522
  Transmission Date: 20210717
  Serious: Yes (Hospitalization, Disabling, Other)
  Sender: FDA-Public Use
  Company Number: None

PATIENT
  Age: 44 Year
  Sex: Female
  Weight: 48.15 kg

DRUGS (4)
  1. CARBIDOPA\LEVODOPA [Suspect]
     Active Substance: CARBIDOPA\LEVODOPA
     Indication: PARKINSON^S DISEASE
     Dosage: ?          QUANTITY:4 TABLET(S);?
     Route: 048
     Dates: start: 20191201, end: 20210522
  2. VITAMIN B12 [Concomitant]
     Active Substance: CYANOCOBALAMIN
  3. DOPA MUCUNA [Concomitant]
  4. REMERON [Concomitant]
     Active Substance: MIRTAZAPINE

REACTIONS (1)
  - Seizure [None]

NARRATIVE: CASE EVENT DATE: 20200105
